FAERS Safety Report 5729674-X (Version None)
Quarter: 2008Q2

REPORT INFORMATION
  Report Type: 
  Country: None (occurrence: None)
  Receive Date: 20080506
  Receipt Date: 20080410
  Transmission Date: 20081010
  Serious: No
  Sender: FDA-Public Use
  Company Number: US-BOEHRINGER INGELHEIM GMBH, GERMANY-2008-BP-05876BP

PATIENT
  Sex: Female

DRUGS (8)
  1. COMBIVENT [Suspect]
     Indication: CHRONIC OBSTRUCTIVE PULMONARY DISEASE
     Route: 055
  2. COMBIVENT [Suspect]
     Indication: ASTHMA
  3. COMBIVENT [Suspect]
     Indication: EMPHYSEMA
  4. COMBIVENT [Suspect]
     Indication: DYSPNOEA
  5. COMBIVENT [Suspect]
     Indication: MULTIPLE ALLERGIES
  6. ALBUTEROL SULFATE [Concomitant]
  7. PRO-AIR [Concomitant]
     Indication: DYSPNOEA
  8. FLOVENT [Concomitant]
     Indication: DYSPNOEA

REACTIONS (1)
  - DRUG INEFFECTIVE [None]
